FAERS Safety Report 10729211 (Version 1)
Quarter: 2015Q1

REPORT INFORMATION
  Report Type: Spontaneous
  Country: US (occurrence: None)
  Receive Date: 20150120
  Receipt Date: 20150120
  Transmission Date: 20150721
  Serious: Yes (Other)
  Sender: FDA-Public Use
  Company Number: None

PATIENT
  Age: 73 Year
  Sex: Male
  Weight: 102.06 kg

DRUGS (1)
  1. VALSARTAN. [Suspect]
     Active Substance: VALSARTAN
     Indication: BLOOD PRESSURE
     Dosage: TAKEN BY MOUTH
     Route: 048

REACTIONS (3)
  - Myalgia [None]
  - Wrong technique in drug usage process [None]
  - Musculoskeletal stiffness [None]

NARRATIVE: CASE EVENT DATE: 20150112
